FAERS Safety Report 13652225 (Version 1)
Quarter: 2017Q2

REPORT INFORMATION
  Report Type: Report from Study
  Country: US (occurrence: US)
  Receive Date: 20170614
  Receipt Date: 20170614
  Transmission Date: 20170830
  Serious: Yes (Hospitalization)
  Sender: FDA-Public Use
  Company Number: US-BAYER-2017-088579

PATIENT
  Age: 78 Year
  Sex: Female

DRUGS (1)
  1. STIVARGA [Suspect]
     Active Substance: REGORAFENIB
     Indication: COLON CANCER
     Dosage: DAILY DOSE 160 MG
     Route: 048
     Dates: start: 20170306

REACTIONS (6)
  - Nausea [None]
  - Oropharyngeal pain [None]
  - Constipation [None]
  - Bone pain [None]
  - Condition aggravated [None]
  - Influenza [None]

NARRATIVE: CASE EVENT DATE: 201705
